FAERS Safety Report 6072476-8 (Version None)
Quarter: 2009Q1

REPORT INFORMATION
  Report Type: 
  Country: None (occurrence: None)
  Receive Date: 20090210
  Receipt Date: 20090129
  Transmission Date: 20090719
  Serious: Yes (Hospitalization, Other)
  Sender: FDA-Public Use
  Company Number: TW-ROCHE-611349

PATIENT
  Sex: Female

DRUGS (9)
  1. RIBAVIRIN [Suspect]
     Dosage: VARIABLE DOSES.
     Route: 048
     Dates: start: 20080319, end: 20080729
  2. RIBAVIRIN [Suspect]
     Route: 048
     Dates: start: 20080730
  3. RIBAVIRIN [Suspect]
     Route: 048
     Dates: start: 20090116, end: 20090122
  4. RIBAVIRIN [Suspect]
     Dosage: DOSE REDUCED
     Route: 048
     Dates: start: 20090123
  5. PEG-INTRON [Suspect]
     Dosage: VARIABLE DOSES
     Route: 058
     Dates: start: 20080319, end: 20080506
  6. PEG-INTRON [Suspect]
     Route: 058
     Dates: start: 20080507, end: 20090121
  7. ELTROMBOPAG [Suspect]
     Indication: THROMBOCYTOPENIA
     Dosage: DRUG : OPEN LABEL ELTROMBOPAG
     Route: 048
     Dates: start: 20080305, end: 20080319
  8. BLINDED ELTROMBOPAG [Suspect]
     Indication: THROMBOCYTOPENIA
     Dosage: DOSE BLINDED.
     Route: 048
     Dates: start: 20080319, end: 20080513
  9. BLINDED ELTROMBOPAG [Suspect]
     Dosage: DOSE BLINDED, THERAPY INTERRUPTED.
     Route: 048
     Dates: start: 20080514

REACTIONS (3)
  - ASTHMA [None]
  - INTERSTITIAL LUNG DISEASE [None]
  - PYREXIA [None]
